FAERS Safety Report 5615544-4 (Version None)
Quarter: 2008Q1

REPORT INFORMATION
  Report Type: 
  Country: None (occurrence: None)
  Receive Date: 20080204
  Receipt Date: 20080204
  Transmission Date: 20080703
  Serious: Yes (Hospitalization)
  Sender: FDA-Public Use
  Company Number: None

PATIENT
  Age: 56 Year
  Sex: Male

DRUGS (1)
  1. SIMVASTATIN [Suspect]
     Indication: HYPERLIPIDAEMIA
     Dosage: 20MG HS PO
     Route: 048
     Dates: start: 20070810, end: 20071111

REACTIONS (2)
  - DRUG SCREEN POSITIVE [None]
  - RHABDOMYOLYSIS [None]
